FAERS Safety Report 8236957-0 (Version None)
Quarter: 2012Q1

REPORT INFORMATION
  Report Type: 
  Country: None (occurrence: None)
  Receive Date: 20120326
  Receipt Date: 20120326
  Transmission Date: 20120608
  Serious: Yes (Disabling)
  Sender: FDA-Public Use
  Company Number: None

PATIENT
  Age: 74 Year
  Sex: Female
  Weight: 64.8644 kg

DRUGS (1)
  1. PROLIA [Suspect]
     Indication: OSTEOPOROSIS
     Dosage: 1 MG 2 INJECTIONS
     Dates: start: 20101221, end: 20110627

REACTIONS (4)
  - STRESS FRACTURE [None]
  - ABASIA [None]
  - HIP FRACTURE [None]
  - GAIT DISTURBANCE [None]
